FAERS Safety Report 7352167-3 (Version None)
Quarter: 2011Q1

REPORT INFORMATION
  Report Type: 
  Country: None (occurrence: None)
  Receive Date: 20110315
  Receipt Date: 20100909
  Transmission Date: 20110831
  Serious: Yes (Hospitalization, Other)
  Sender: FDA-Public Use
  Company Number: US-BAYER-200942894NA

PATIENT
  Sex: Female
  Weight: 52.273 kg

DRUGS (8)
  1. MULTI-VITAMIN [Concomitant]
  2. CYMBALTA [Concomitant]
  3. FISH OIL [Concomitant]
  4. DIETARY SUPPLEMENTS [Concomitant]
  5. YAZ [Suspect]
     Indication: CONTRACEPTION
     Dosage: UNK UNK, UNK
     Route: 048
     Dates: start: 20070216, end: 20070801
  6. CALCIUM [Concomitant]
  7. VITAMIN E [Concomitant]
  8. DEPO-PROVERA [Concomitant]
     Dosage: UNK

REACTIONS (7)
  - PAIN [None]
  - DYSPNOEA [None]
  - ANXIETY [None]
  - PULMONARY EMBOLISM [None]
  - HYPOAESTHESIA [None]
  - SWELLING [None]
  - THROMBOSIS [None]
